FAERS Safety Report 15397466 (Version 1)
Quarter: 2018Q3

REPORT INFORMATION
  Report Type: Spontaneous
  Country: IT (occurrence: IT)
  Receive Date: 20180918
  Receipt Date: 20180918
  Transmission Date: 20181010
  Serious: Yes (Other)
  Sender: FDA-Public Use
  Company Number: PHHY2018IT100413

PATIENT
  Sex: Female

DRUGS (8)
  1. NILOTINIB [Suspect]
     Active Substance: NILOTINIB
     Indication: CHRONIC MYELOID LEUKAEMIA
     Dosage: 800 MG, UNK
     Route: 065
     Dates: start: 20120807
  2. NILOTINIB [Suspect]
     Active Substance: NILOTINIB
     Dosage: 800 MG, UNK
     Route: 065
     Dates: start: 201412
  3. INTERFERON [Concomitant]
     Active Substance: INTERFERON
     Dosage: 6 MIU, UNK
     Route: 065
  4. IMATINIB [Suspect]
     Active Substance: IMATINIB
     Indication: CHRONIC MYELOID LEUKAEMIA
     Dosage: 400 MG, UNK
     Route: 065
     Dates: start: 20090701
  5. BOSULIF [Suspect]
     Active Substance: BOSUTINIB MONOHYDRATE
     Indication: CHRONIC MYELOID LEUKAEMIA
     Dosage: 300 MG, UNK
     Route: 065
     Dates: start: 20151107
  6. NILOTINIB [Suspect]
     Active Substance: NILOTINIB
     Dosage: 600 MG, UNK
     Route: 065
  7. BOSULIF [Suspect]
     Active Substance: BOSUTINIB MONOHYDRATE
     Dosage: 500 MG, UNK
     Route: 065
     Dates: start: 20151121
  8. INTERFERON [Concomitant]
     Active Substance: INTERFERON
     Indication: PRODUCT USED FOR UNKNOWN INDICATION
     Dosage: 1.5 MIU TO 3 MIU
     Route: 065

REACTIONS (9)
  - Muscle spasms [Unknown]
  - Therapeutic response decreased [Unknown]
  - Headache [Unknown]
  - Pericarditis [Unknown]
  - Blood pressure increased [Unknown]
  - Normal newborn [Unknown]
  - Haematotoxicity [Unknown]
  - Maternal exposure during pregnancy [Unknown]
  - Proteinuria [Unknown]

NARRATIVE: CASE EVENT DATE: 20151021
